APPROVED DRUG PRODUCT: RELEXXII
Active Ingredient: METHYLPHENIDATE HYDROCHLORIDE
Strength: 27MG
Dosage Form/Route: TABLET, EXTENDED RELEASE;ORAL
Application: N216117 | Product #002
Applicant: OSMOTICA PHARMACEUTICAL US LLC
Approved: Jun 23, 2022 | RLD: Yes | RS: No | Type: RX

PATENTS:
Patent 10695336 | Expires: Feb 3, 2037
Patent 10265308 | Expires: Feb 3, 2037
Patent 9855258 | Expires: Feb 3, 2037
Patent 9827234 | Expires: Feb 3, 2037
Patent 9707217 | Expires: Feb 3, 2037